FAERS Safety Report 11414143 (Version 2)
Quarter: 2015Q3

REPORT INFORMATION
  Report Type: Spontaneous
  Country: US (occurrence: US)
  Receive Date: 20150824
  Receipt Date: 20150918
  Transmission Date: 20151125
  Serious: No
  Sender: FDA-Public Use
  Company Number: US-SHIRE-US201510622

PATIENT
  Sex: Male

DRUGS (2)
  1. LIALDA [Suspect]
     Active Substance: MESALAMINE
     Dosage: 1.2 G, 4X/DAY:QID
     Route: 048
  2. LIALDA [Suspect]
     Active Substance: MESALAMINE
     Indication: GASTROINTESTINAL DISORDER
     Dosage: 1.2 G, 2X/DAY:BID
     Route: 048

REACTIONS (5)
  - Oral administration complication [Unknown]
  - Inappropriate schedule of drug administration [Not Recovered/Not Resolved]
  - Diarrhoea [Unknown]
  - Product use issue [Not Recovered/Not Resolved]
  - Therapeutic response unexpected [Unknown]
